FAERS Safety Report 23535252 (Version 1)
Quarter: 2024Q1

REPORT INFORMATION
  Report Type: Spontaneous
  Country: JP (occurrence: JP)
  Receive Date: 20240218
  Receipt Date: 20240218
  Transmission Date: 20240410
  Serious: Yes (Hospitalization, Other)
  Sender: FDA-Public Use
  Company Number: JP-HEXAL-SDZ2023JP041807AA

PATIENT
  Age: 61 Year
  Sex: Male

DRUGS (3)
  1. METHOTREXATE [Suspect]
     Active Substance: METHOTREXATE
     Indication: Behcet^s syndrome
     Dosage: 6MG/WEEK
     Route: 048
  2. FOLIC ACID [Concomitant]
     Active Substance: FOLIC ACID
     Indication: Behcet^s syndrome
     Dosage: 5MG/WEEK
     Route: 048
  3. PREDNISOLONE [Concomitant]
     Active Substance: PREDNISOLONE
     Indication: Behcet^s syndrome
     Dosage: UNK
     Route: 048

REACTIONS (7)
  - Hyperkalaemia [Unknown]
  - Acute kidney injury [Recovering/Resolving]
  - Myelosuppression [Recovering/Resolving]
  - Toxicity to various agents [Recovering/Resolving]
  - Mobility decreased [Unknown]
  - Dyspnoea [Unknown]
  - Contraindicated product administered [Unknown]
